FAERS Safety Report 19402201 (Version 2)
Quarter: 2021Q3

REPORT INFORMATION
  Report Type: Spontaneous
  Country: JP (occurrence: JP)
  Receive Date: 20210611
  Receipt Date: 20210707
  Transmission Date: 20211014
  Serious: Yes (Hospitalization, Other)
  Sender: FDA-Public Use
  Company Number: JP-NOVOPROD-819383

PATIENT
  Age: 67 Year
  Sex: Male

DRUGS (5)
  1. BYCLOT [Concomitant]
     Active Substance: COAGULATION FACTOR VII HUMAN\COAGULATION FACTOR X HUMAN
     Indication: FACTOR VIII DEFICIENCY
     Dosage: 60MCG/KG X 2 (TWICE, EVERY 48 HOURS)
     Route: 042
  2. NOVOSEVEN [Suspect]
     Active Substance: COAGULATION FACTOR VIIA RECOMBINANT HUMAN
     Indication: LARGE INTESTINAL HAEMORRHAGE
     Dosage: 90MCG/KG, WAS CHANGED TO EVERY 12 HOURS
     Route: 042
  3. NOVOSEVEN [Suspect]
     Active Substance: COAGULATION FACTOR VIIA RECOMBINANT HUMAN
     Indication: HAEMOPHILIA A WITH ANTI FACTOR VIII
     Dosage: 90UG/KG, EVERY THREE HOURS
     Route: 042
     Dates: start: 202012
  4. EMICIZUMAB. [Concomitant]
     Active Substance: EMICIZUMAB
     Indication: FACTOR VIII DEFICIENCY
     Dosage: 1.5 MG/KG, QW
     Route: 058
  5. BYCLOT [Concomitant]
     Active Substance: COAGULATION FACTOR VII HUMAN\COAGULATION FACTOR X HUMAN
     Indication: LARGE INTESTINAL HAEMORRHAGE
     Dosage: 60MCG/KG, TWICE
     Route: 042

REACTIONS (2)
  - Therapeutic response decreased [Recovered/Resolved]
  - Haematochezia [Recovered/Resolved]

NARRATIVE: CASE EVENT DATE: 202012
